FAERS Safety Report 9210886 (Version 1)
Quarter: 2013Q2

REPORT INFORMATION
  Report Type: Spontaneous
  Country: ES (occurrence: ES)
  Receive Date: 20130404
  Receipt Date: 20130404
  Transmission Date: 20140414
  Serious: Yes (Other)
  Sender: FDA-Public Use
  Company Number: ES-PFIZER INC-2013106452

PATIENT
  Age: 66 Year
  Sex: Male

DRUGS (8)
  1. LYRICA [Suspect]
     Indication: BACK PAIN
  2. TENORMIN [Concomitant]
  3. PANTOPRAZOL [Concomitant]
  4. ZAMENE [Concomitant]
  5. TROMALYT [Concomitant]
  6. KALPRESS [Concomitant]
  7. ADIRO [Concomitant]
  8. TEPAZEPAN [Concomitant]

REACTIONS (1)
  - Cerebrovascular accident [Unknown]
